FAERS Safety Report 17498721 (Version 2)
Quarter: 2020Q1

REPORT INFORMATION
  Report Type: Spontaneous
  Country: IE (occurrence: IE)
  Receive Date: 20200305
  Receipt Date: 20200317
  Transmission Date: 20200409
  Serious: Yes (Life-Threatening, Hospitalization, Disabling)
  Sender: FDA-Public Use
  Company Number: IE-B.I. PHARMACEUTICALS,INC./RIDGEFIELD-2020-BI-011929

PATIENT
  Age: 51 Year
  Sex: Male

DRUGS (4)
  1. OFEV [Suspect]
     Active Substance: NINTEDANIB
     Indication: FIBROSIS
     Route: 048
     Dates: start: 20200131, end: 20200209
  2. OFEV [Suspect]
     Active Substance: NINTEDANIB
     Indication: ANTISYNTHETASE SYNDROME
  3. OFEV [Suspect]
     Active Substance: NINTEDANIB
     Indication: SCLERODERMA
  4. TELMISARTAN. [Concomitant]
     Active Substance: TELMISARTAN
     Indication: BLOOD PRESSURE SYSTOLIC INCREASED
     Route: 048
     Dates: start: 20200203, end: 20200219

REACTIONS (1)
  - Scleroderma renal crisis [Not Recovered/Not Resolved]

NARRATIVE: CASE EVENT DATE: 20200219
